FAERS Safety Report 15965710 (Version 2)
Quarter: 2019Q1

REPORT INFORMATION
  Report Type: Spontaneous
  Country: US (occurrence: US)
  Receive Date: 20190215
  Receipt Date: 20190302
  Transmission Date: 20190418
  Serious: No
  Sender: FDA-Public Use
  Company Number: US-009507513-1902USA004910

PATIENT
  Age: 8 Month
  Sex: Male

DRUGS (3)
  1. REBETOL [Suspect]
     Active Substance: RIBAVIRIN
     Indication: ENTEROVIRUS INFECTION
  2. REBETOL [Suspect]
     Active Substance: RIBAVIRIN
     Indication: RHINOVIRUS INFECTION
     Dosage: 15-60/MG/D, 71 OUT OF 106 DAYS, 46 D BEFORE PAUSE; 3.5 MOS ON/OFF, AFTER TRANSPLANT
     Route: 048
  3. REBETOL [Suspect]
     Active Substance: RIBAVIRIN
     Indication: PARAINFLUENZAE VIRUS INFECTION
     Dosage: BEFORE TRANSPLANT
     Route: 048

REACTIONS (1)
  - Off label use [Unknown]
